FAERS Safety Report 7257150-4 (Version None)
Quarter: 2011Q1

REPORT INFORMATION
  Report Type: 
  Country: None (occurrence: None)
  Receive Date: 20110129
  Receipt Date: 20100813
  Transmission Date: 20110831
  Serious: No
  Sender: FDA-Public Use
  Company Number: US-ABBOTT-10P-163-0664639-00

PATIENT
  Sex: Male
  Weight: 62.652 kg

DRUGS (4)
  1. MULTIVITAMIN [Concomitant]
     Indication: PRODUCT USED FOR UNKNOWN INDICATION
  2. HUMIRA [Suspect]
     Dates: end: 20100704
  3. HUMIRA [Suspect]
     Indication: CROHN'S DISEASE
     Dates: start: 20090101
  4. DRONABINOL [Concomitant]
     Indication: INCREASED APPETITE

REACTIONS (12)
  - MUSCULAR WEAKNESS [None]
  - CONFUSIONAL STATE [None]
  - MUSCLE ATROPHY [None]
  - INSOMNIA [None]
  - EMOTIONAL DISORDER [None]
  - MENTAL DISORDER [None]
  - PSYCHOMOTOR HYPERACTIVITY [None]
  - ARTHRALGIA [None]
  - AMNESIA [None]
  - EAR PAIN [None]
  - ANXIETY [None]
  - WEIGHT DECREASED [None]
